FAERS Safety Report 26214342 (Version 1)
Quarter: 2025Q4

REPORT INFORMATION
  Report Type: Spontaneous
  Country: SA (occurrence: SA)
  Receive Date: 20251230
  Receipt Date: 20251230
  Transmission Date: 20260118
  Serious: Yes (Other)
  Sender: APELLIS PHARMACEUTICALS
  Company Number: SA-BIOVITRUM-2025-SA-017890

PATIENT

DRUGS (1)
  1. PEGCETACOPLAN [Suspect]
     Active Substance: PEGCETACOPLAN
     Indication: C3 glomerulopathy
     Dosage: TWICE WEEKLY WITHOUT PRE-MEDICATIONS
     Route: 058
     Dates: start: 20250904

REACTIONS (2)
  - Lipodystrophy acquired [Unknown]
  - Retinal drusen [Unknown]
